FAERS Safety Report 7884245-4 (Version None)
Quarter: 2011Q4

REPORT INFORMATION
  Report Type: 
  Country: None (occurrence: None)
  Receive Date: 20111102
  Receipt Date: 20111028
  Transmission Date: 20120403
  Serious: No
  Sender: FDA-Public Use
  Company Number: US-PFIZER INC-2011264525

PATIENT
  Sex: Female
  Weight: 51.7 kg

DRUGS (2)
  1. ESTRING [Suspect]
     Indication: VULVOVAGINAL DRYNESS
     Dosage: UNK
     Route: 067
     Dates: start: 20111014
  2. AMLODIPINE [Concomitant]
     Indication: ANGIOPATHY
     Dosage: UNK

REACTIONS (1)
  - VAGINAL ODOUR [None]
